FAERS Safety Report 9411836 (Version 2)
Quarter: 2013Q3

REPORT INFORMATION
  Report Type: Spontaneous
  Country: US (occurrence: US)
  Receive Date: 20130722
  Receipt Date: 20130829
  Transmission Date: 20140515
  Serious: Yes (Other)
  Sender: FDA-Public Use
  Company Number: US-PFIZER INC-2013213245

PATIENT
  Age: 50 Year
  Sex: Male
  Weight: 74.83 kg

DRUGS (1)
  1. ADVIL MIGRAINE [Suspect]
     Indication: MIGRAINE
     Dosage: UNK, AS NEEDED
     Route: 048
     Dates: start: 2012

REACTIONS (3)
  - Haematochezia [Not Recovered/Not Resolved]
  - Anorectal infection [Not Recovered/Not Resolved]
  - Rectal discharge [Not Recovered/Not Resolved]
